FAERS Safety Report 7533636-X (Version None)
Quarter: 2011Q2

REPORT INFORMATION
  Report Type: 
  Country: None (occurrence: None)
  Receive Date: 20110608
  Receipt Date: 20060317
  Transmission Date: 20111010
  Serious: Yes (Death)
  Sender: FDA-Public Use
  Company Number: PHFR2006GB00994

PATIENT
  Sex: Male

DRUGS (4)
  1. LANSOPRAZOLE [Concomitant]
     Indication: HAEMATEMESIS
     Route: 048
  2. CLOZAPINE [Suspect]
     Indication: SCHIZOPHRENIA
     Dosage: 400 MG, QD
     Route: 048
     Dates: start: 20050818
  3. FLUOXETINE HCL [Concomitant]
     Indication: DEPRESSION
     Dosage: 20 MG, QD
     Route: 048
  4. HYOSCINE [Concomitant]
     Indication: SALIVARY HYPERSECRETION
     Dosage: 900 MG, UNK
     Route: 048

REACTIONS (1)
  - CIRCULATORY COLLAPSE [None]
